FAERS Safety Report 13102061 (Version 1)
Quarter: 2017Q1

REPORT INFORMATION
  Report Type: Spontaneous
  Country: FR (occurrence: FR)
  Receive Date: 20170110
  Receipt Date: 20170110
  Transmission Date: 20170428
  Serious: Yes (Hospitalization)
  Sender: FDA-Public Use
  Company Number: FR-INDIVIOR LIMITED-INDV-097624-2016

PATIENT
  Age: 32 Year
  Sex: Male

DRUGS (7)
  1. NICOTINE. [Suspect]
     Active Substance: NICOTINE
     Indication: PRODUCT USED FOR UNKNOWN INDICATION
     Dosage: 30 ROLLED-UP CIGARETTES, DAILY
     Route: 065
  2. COCAINE [Suspect]
     Active Substance: COCAINE
     Indication: PRODUCT USED FOR UNKNOWN INDICATION
     Dosage: UNK
     Route: 065
  3. CANNABIS [Suspect]
     Active Substance: CANNABIS SATIVA SUBSP. INDICA TOP
     Indication: PRODUCT USED FOR UNKNOWN INDICATION
     Dosage: UNK
     Route: 065
  4. HEROIN [Suspect]
     Active Substance: DIACETYLMORPHINE
     Indication: PRODUCT USED FOR UNKNOWN INDICATION
     Dosage: UNK
     Route: 065
  5. SUBUTEX [Suspect]
     Active Substance: BUPRENORPHINE HYDROCHLORIDE
     Indication: PRODUCT USED FOR UNKNOWN INDICATION
     Dosage: UNK
     Route: 051
  6. ALCOHOL. [Suspect]
     Active Substance: ALCOHOL
     Indication: PRODUCT USED FOR UNKNOWN INDICATION
     Dosage: UNK
     Route: 065
  7. METHADONE [Suspect]
     Active Substance: METHADONE HYDROCHLORIDE
     Indication: PRODUCT USED FOR UNKNOWN INDICATION
     Dosage: 60MG, DAILY
     Route: 065

REACTIONS (15)
  - Emphysema [Unknown]
  - Arthritis bacterial [Recovering/Resolving]
  - Intentional product use issue [Recovering/Resolving]
  - Alcohol abuse [Unknown]
  - Endocarditis staphylococcal [Recovering/Resolving]
  - Splenic embolism [Recovering/Resolving]
  - Embolism [Unknown]
  - Erysipelas [Recovering/Resolving]
  - Drug dependence [Recovering/Resolving]
  - Hyperthermia [Recovered/Resolved]
  - Tachycardia [Recovered/Resolved]
  - Pulmonary embolism [Recovering/Resolving]
  - Hyponatraemia [Recovered/Resolved]
  - Respiratory failure [Recovered/Resolved]
  - Drug abuse [Unknown]

NARRATIVE: CASE EVENT DATE: 201606
